FAERS Safety Report 9415599 (Version 2)
Quarter: 2013Q3

REPORT INFORMATION
  Report Type: Spontaneous
  Country: US (occurrence: US)
  Receive Date: 20130723
  Receipt Date: 20130731
  Transmission Date: 20140515
  Serious: Yes (Hospitalization, Other)
  Sender: FDA-Public Use
  Company Number: PHEH2013US015473

PATIENT
  Sex: Male

DRUGS (7)
  1. DIOVAN [Suspect]
     Indication: HYPERTENSION
     Dosage: 1 DF OF 160 MG, PER DAY
     Route: 048
  2. PRADAXA [Concomitant]
     Dosage: 150 MG, BID
     Route: 048
  3. FUROSEMIDE [Concomitant]
     Indication: DIURETIC THERAPY
     Dosage: 40 MG, QOD
     Route: 048
  4. ATORVASTATIN [Concomitant]
     Indication: BLOOD CHOLESTEROL
     Dosage: 1 DF (20MG) PER DAY
  5. AMIODARONE [Concomitant]
     Dosage: 200 MG, QD
  6. METOPROLOL [Concomitant]
     Dosage: 50 MG, BID
  7. KLOR-CON [Concomitant]
     Dosage: 10 MG, UNK

REACTIONS (10)
  - Cardiac failure congestive [Unknown]
  - Dyspnoea [Unknown]
  - Cough [Unknown]
  - Heart rate increased [Unknown]
  - Cardiomyopathy [Unknown]
  - Lip discolouration [Unknown]
  - Pallor [Unknown]
  - Depression [Unknown]
  - Hypersomnia [Unknown]
  - Influenza [Unknown]
